FAERS Safety Report 21557006 (Version 1)
Quarter: 2022Q4

REPORT INFORMATION
  Report Type: Spontaneous
  Country: US (occurrence: US)
  Receive Date: 20221104
  Receipt Date: 20221104
  Transmission Date: 20230113
  Serious: No
  Sender: FDA-Public Use
  Company Number: US-ELI_LILLY_AND_COMPANY-US202210008387

PATIENT
  Age: 62 Year
  Sex: Male

DRUGS (4)
  1. HUMALOG [Suspect]
     Active Substance: INSULIN LISPRO
     Indication: Type 1 diabetes mellitus
     Dosage: 15 U, EACH MORNING
     Route: 065
     Dates: start: 20220201
  2. HUMALOG [Suspect]
     Active Substance: INSULIN LISPRO
     Indication: Type 2 diabetes mellitus
     Dosage: 20 U, BID (IN AFTERNOON AND AT NIGHT)
     Dates: start: 20220201
  3. BASAGLAR [Suspect]
     Active Substance: INSULIN GLARGINE
     Indication: Type 1 diabetes mellitus
     Dosage: 40 U, DAILY
     Route: 065
     Dates: start: 20220201
  4. BASAGLAR [Suspect]
     Active Substance: INSULIN GLARGINE
     Indication: Type 2 diabetes mellitus
     Dosage: 44 UNK
     Route: 065

REACTIONS (3)
  - Decreased appetite [Unknown]
  - Glycosylated haemoglobin increased [Unknown]
  - Weight increased [Unknown]

NARRATIVE: CASE EVENT DATE: 20220201
